FAERS Safety Report 22215573 (Version 1)
Quarter: 2023Q2

REPORT INFORMATION
  Report Type: Spontaneous
  Country: CN (occurrence: CN)
  Receive Date: 20230416
  Receipt Date: 20230416
  Transmission Date: 20230722
  Serious: Yes (Other)
  Sender: FDA-Public Use
  Company Number: CN-JNJFOC-20230413671

PATIENT
  Age: 48 Year
  Sex: Female
  Weight: 47 kg

DRUGS (4)
  1. SIRTURO [Suspect]
     Active Substance: BEDAQUILINE FUMARATE
     Indication: Antibiotic prophylaxis
     Route: 048
     Dates: start: 20220914, end: 20230325
  2. CYCLOSERINE [Suspect]
     Active Substance: CYCLOSERINE
     Indication: Antibiotic prophylaxis
     Route: 065
     Dates: start: 202209
  3. LINEZOLID [Suspect]
     Active Substance: LINEZOLID
     Indication: Antibiotic prophylaxis
     Route: 065
     Dates: start: 202209
  4. MOXIFLOXACIN HYDROCHLORIDE [Suspect]
     Active Substance: MOXIFLOXACIN HYDROCHLORIDE
     Indication: Antibiotic prophylaxis
     Route: 065
     Dates: start: 202209

REACTIONS (1)
  - Tremor [Recovered/Resolved]

NARRATIVE: CASE EVENT DATE: 20230325
